FAERS Safety Report 17196428 (Version 1)
Quarter: 2019Q4

REPORT INFORMATION
  Report Type: Spontaneous
  Country: FR (occurrence: FR)
  Receive Date: 20191224
  Receipt Date: 20191224
  Transmission Date: 20200122
  Serious: Yes (Hospitalization, Congenital Anomaly, Other)
  Sender: FDA-Public Use
  Company Number: FR-UCBSA-2019054230

PATIENT
  Sex: Male

DRUGS (18)
  1. URBANYL [Suspect]
     Active Substance: CLOBAZAM
     Dosage: 1 IN THE MORNING
     Route: 064
     Dates: start: 20110105, end: 20110202
  2. URBANYL [Suspect]
     Active Substance: CLOBAZAM
     Dosage: 1 IN THE EVENING
     Route: 064
     Dates: start: 20110301, end: 20110526
  3. KEPPRA [Suspect]
     Active Substance: LEVETIRACETAM
     Indication: PRODUCT USED FOR UNKNOWN INDICATION
     Dosage: 3 IN THE MORNING AND IN THE EVENING
     Route: 064
     Dates: start: 20110526, end: 20110802
  4. DEPAKINE CHRONO [Suspect]
     Active Substance: VALPROATE SODIUM
     Dosage: PROGRESSIVE DIMINUTION
     Route: 064
     Dates: start: 20110202, end: 20110301
  5. URBANYL [Suspect]
     Active Substance: CLOBAZAM
     Indication: PRODUCT USED FOR UNKNOWN INDICATION
     Dosage: 1 IN THE MORNING AND ? IN THE EVENING
     Route: 064
     Dates: start: 20110202, end: 20110301
  6. SPECIAFOLDINE [Concomitant]
     Active Substance: FOLIC ACID
     Dosage: 5 MG, QD
     Route: 064
     Dates: start: 20110526, end: 20110802
  7. KEPPRA [Suspect]
     Active Substance: LEVETIRACETAM
     Dosage: 3 IN THE MORNING AND IN THE EVENING
     Route: 064
     Dates: start: 20110301, end: 20110526
  8. SPECIAFOLDINE [Concomitant]
     Active Substance: FOLIC ACID
     Indication: PRODUCT USED FOR UNKNOWN INDICATION
     Dosage: 2 IN THE MORNING AND IN THE EVENING
     Route: 064
     Dates: start: 20110105, end: 20110202
  9. KEPPRA [Suspect]
     Active Substance: LEVETIRACETAM
     Dosage: 2 (UNSPECIFIED UNITS), 2X/DAY (BID)
     Route: 064
     Dates: start: 20110105, end: 20110202
  10. DEPAKINE CHRONO [Suspect]
     Active Substance: VALPROATE SODIUM
     Indication: PRODUCT USED FOR UNKNOWN INDICATION
     Dosage: 1 ,5 TABLETS IN THE MORNING AND 2 IN THE EVENING DURING 5 DAYS ; 1,5 TABLETS IN THE MORNING AND 1,5
     Route: 064
     Dates: start: 20110105, end: 20110202
  11. ASPEGIC [ACETYLSALICYLIC ACID] [Suspect]
     Active Substance: ASPIRIN
     Dosage: 1 AT LUNCH
     Route: 064
     Dates: start: 20110202, end: 20110301
  12. DEPAKINE CHRONO [Suspect]
     Active Substance: VALPROATE SODIUM
     Dosage: UNK
     Route: 064
     Dates: start: 201012, end: 20110802
  13. URBANYL [Suspect]
     Active Substance: CLOBAZAM
     Dosage: 1 IN THE MORNING AND ? IN THE EVENING
     Route: 064
     Dates: start: 20110526, end: 20110802
  14. SPECIAFOLDINE [Concomitant]
     Active Substance: FOLIC ACID
     Dosage: 1 IN THE MORNING AND IN THE EVENING
     Route: 064
     Dates: start: 20110202, end: 20110301
  15. DEPAKINE CHRONO [Suspect]
     Active Substance: VALPROATE SODIUM
     Dosage: 1 IN THE EVENING, ONCE DAILY (QD)
     Route: 064
     Dates: start: 20110301, end: 20110526
  16. KEPPRA [Suspect]
     Active Substance: LEVETIRACETAM
     Dosage: 1 IN THE MORNING AND 2 IN THE EVENING THEN 1 IN THE MORNING AND IN THE EVENING
     Route: 064
     Dates: start: 20110202, end: 20110301
  17. ASPEGIC [ACETYLSALICYLIC ACID] [Suspect]
     Active Substance: ASPIRIN
     Indication: PRODUCT USED FOR UNKNOWN INDICATION
     Dosage: 1 PER DAY
     Route: 064
     Dates: start: 20110301, end: 20110526
  18. ASPEGIC [ACETYLSALICYLIC ACID] [Suspect]
     Active Substance: ASPIRIN
     Dosage: 1 PER DAY
     Route: 064
     Dates: start: 20110526, end: 20110802

REACTIONS (45)
  - Nasopharyngitis [Unknown]
  - Learning disorder [Unknown]
  - Hypermobility syndrome [Unknown]
  - Cardiac murmur functional [Unknown]
  - Irritability [Unknown]
  - Aggression [Unknown]
  - Cognitive disorder [Unknown]
  - Anger [Unknown]
  - Clonus [Unknown]
  - Congenital infection [Unknown]
  - Presyncope [Unknown]
  - Motor dysfunction [Unknown]
  - Abnormal behaviour [Unknown]
  - Bronchitis [Unknown]
  - Epilepsy [Unknown]
  - Disturbance in attention [Unknown]
  - Malaise [Unknown]
  - Dysmorphism [Unknown]
  - Impulsive behaviour [Unknown]
  - Foetal anticonvulsant syndrome [Unknown]
  - Ear malformation [Unknown]
  - Head injury [Unknown]
  - Neonatal respiratory distress syndrome [Unknown]
  - Maternal exposure during pregnancy [Unknown]
  - Tracheitis [Unknown]
  - Bronchiolitis [Unknown]
  - Hand-eye coordination impaired [Unknown]
  - Dyspraxia [Unknown]
  - Nervousness [Unknown]
  - Psychomotor retardation [Unknown]
  - Attention deficit/hyperactivity disorder [Unknown]
  - Arthropathy [Unknown]
  - Regurgitation [Unknown]
  - Phobia [Unknown]
  - Frustration tolerance decreased [Unknown]
  - Laryngitis [Unknown]
  - Behaviour disorder [Unknown]
  - Autism spectrum disorder [Unknown]
  - Syncope [Unknown]
  - Dysgraphia [Unknown]
  - Congenital hand malformation [Unknown]
  - Fall [Unknown]
  - Language disorder [Unknown]
  - Psychomotor hyperactivity [Unknown]
  - Vomiting [Unknown]

NARRATIVE: CASE EVENT DATE: 20110911
